FAERS Safety Report 7081395-X (Version None)
Quarter: 2010Q4

REPORT INFORMATION
  Report Type: 
  Country: None (occurrence: None)
  Receive Date: 20101103
  Receipt Date: 20101101
  Transmission Date: 20110411
  Serious: Yes (Death, Other)
  Sender: FDA-Public Use
  Company Number: PHHY2010US66861

PATIENT
  Sex: Male
  Weight: 65 kg

DRUGS (1)
  1. EXJADE [Suspect]
     Dosage: 1250 MG, QD
     Route: 048

REACTIONS (3)
  - DEATH [None]
  - GENERAL PHYSICAL CONDITION ABNORMAL [None]
  - MALIGNANT NEOPLASM PROGRESSION [None]
